FAERS Safety Report 22871739 (Version 5)
Quarter: 2023Q4

REPORT INFORMATION
  Report Type: Spontaneous
  Country: US (occurrence: US)
  Receive Date: 20230828
  Receipt Date: 20231122
  Transmission Date: 20240110
  Serious: Yes (Hospitalization, Other)
  Sender: FDA-Public Use
  Company Number: US-BRISTOL-MYERS SQUIBB COMPANY-2023-119151

PATIENT
  Age: 83 Year
  Sex: Female

DRUGS (2)
  1. LENALIDOMIDE [Suspect]
     Active Substance: LENALIDOMIDE
     Indication: Myelodysplastic syndrome
     Dosage: TAKE 1 CAPSULE BY MOUTH EVERY DAY FOR 28 DAYS OUT OF A 28 DAY CYCLE
     Route: 048
     Dates: start: 20230628
  2. LENALIDOMIDE [Suspect]
     Active Substance: LENALIDOMIDE
     Dosage: TAKE 1 CAPSULE BY MOUTH EVERY DAY FOR 28 DAY CYCLE
     Route: 048

REACTIONS (7)
  - Localised infection [Recovering/Resolving]
  - Rash pruritic [Recovered/Resolved]
  - Pleural effusion [Recovering/Resolving]
  - Rash macular [Recovering/Resolving]
  - Skin infection [Recovering/Resolving]
  - Atrial fibrillation [Recovered/Resolved]
  - Fluid retention [Recovered/Resolved]

NARRATIVE: CASE EVENT DATE: 20230803
